FAERS Safety Report 8147764-1 (Version None)
Quarter: 2012Q1

REPORT INFORMATION
  Report Type: 
  Country: None (occurrence: None)
  Receive Date: 20120218
  Receipt Date: 20110315
  Transmission Date: 20120608
  Serious: No
  Sender: FDA-Public Use
  Company Number: US-ALLERGAN-1103771US

PATIENT
  Age: 62 Year
  Sex: Female

DRUGS (3)
  1. BOTOX COSMETIC [Suspect]
     Dosage: UNK
     Dates: start: 20090901, end: 20090901
  2. BOTOX COSMETIC [Suspect]
     Indication: SKIN WRINKLING
     Dosage: UNK
     Route: 030
     Dates: start: 20110217, end: 20110217
  3. BOTOX COSMETIC [Suspect]
     Dosage: UNK
     Dates: start: 20101001, end: 20101001

REACTIONS (6)
  - SWELLING FACE [None]
  - SKIN WRINKLING [None]
  - NASAL OEDEMA [None]
  - SKIN TIGHTNESS [None]
  - CONTUSION [None]
  - INJECTION SITE RASH [None]
